FAERS Safety Report 4623118-7 (Version None)
Quarter: 2005Q1

REPORT INFORMATION
  Report Type: 
  Country: None (occurrence: None)
  Receive Date: 20050328
  Receipt Date: 20050328
  Transmission Date: 20050727
  Serious: Yes (Life-Threatening, Hospitalization)
  Sender: FDA-Public Use
  Company Number: None

PATIENT
  Age: 71 Year
  Sex: Male
  Weight: 95 kg

DRUGS (6)
  1. CETUXIMAB    2 MG/ML    BMS/IMCLONE [Suspect]
     Indication: PANCREATIC CARCINOMA METASTATIC
     Dosage: 800 MG   EVERY 2 WEEKS   INTRAVENOU
     Route: 042
     Dates: start: 20041005, end: 20041005
  2. TINZAPARIN [Concomitant]
  3. ATENOLOL [Concomitant]
  4. AMIODARONE [Concomitant]
  5. OXYCONTIN [Concomitant]
  6. ASPIRIN [Concomitant]

REACTIONS (7)
  - CHEST PAIN [None]
  - COMA [None]
  - INFUSION RELATED REACTION [None]
  - LETHARGY [None]
  - RESPIRATORY DISORDER [None]
  - SOMNOLENCE [None]
  - VOMITING [None]
